FAERS Safety Report 6544857-7 (Version None)
Quarter: 2010Q1

REPORT INFORMATION
  Report Type: 
  Country: None (occurrence: None)
  Receive Date: 20100121
  Receipt Date: 20100111
  Transmission Date: 20100710
  Serious: Yes (Life-Threatening, Other)
  Sender: FDA-Public Use
  Company Number: US-PFIZER INC-2010004721

PATIENT

DRUGS (1)
  1. BEXTRA [Suspect]

REACTIONS (3)
  - AORTIC ANEURYSM [None]
  - METASTATIC NEOPLASM [None]
  - UROSEPSIS [None]
